FAERS Safety Report 4619326-1 (Version None)
Quarter: 2005Q1

REPORT INFORMATION
  Report Type: 
  Country: None (occurrence: None)
  Receive Date: 20050318
  Receipt Date: 20050318
  Transmission Date: 20050727
  Serious: Yes (Hospitalization)
  Sender: FDA-Public Use
  Company Number: None

PATIENT
  Sex: Male
  Weight: 88.905 kg

DRUGS (2)
  1. PRIMAXIN [Suspect]
     Indication: OSTEOMYELITIS
     Dosage: IV [X4 WEEKS PRIOR TO THE HOSPITALIZATION]
     Route: 042
  2. CELEXA [Concomitant]

REACTIONS (1)
  - CLOSTRIDIUM COLITIS [None]
